FAERS Safety Report 18154168 (Version 2)
Quarter: 2020Q3

REPORT INFORMATION
  Report Type: Spontaneous
  Country: AU (occurrence: AU)
  Receive Date: 20200816
  Receipt Date: 20200817
  Transmission Date: 20201103
  Serious: Yes (Hospitalization)
  Sender: FDA-Public Use
  Company Number: AU-ABBVIE-20K-163-3525077-00

PATIENT
  Sex: Female
  Weight: 61.8 kg

DRUGS (3)
  1. FISH OIL [Concomitant]
     Active Substance: FISH OIL
     Indication: PRODUCT USED FOR UNKNOWN INDICATION
     Route: 048
  2. MAGNESIUM [Concomitant]
     Active Substance: MAGNESIUM
     Indication: PRODUCT USED FOR UNKNOWN INDICATION
     Route: 048
  3. IMBRUVICA [Suspect]
     Active Substance: IBRUTINIB
     Indication: NON-HODGKIN^S LYMPHOMA
     Route: 048
     Dates: start: 20181126, end: 20190919

REACTIONS (16)
  - Demyelinating polyneuropathy [Unknown]
  - Guillain-Barre syndrome [Unknown]
  - Cerebrovascular accident [Unknown]
  - Decreased appetite [Unknown]
  - Skin cancer [Unknown]
  - Diabetes mellitus [Unknown]
  - Diarrhoea [Recovering/Resolving]
  - Hepatic infection [Unknown]
  - Cognitive disorder [Unknown]
  - Hepatic pain [Unknown]
  - Urosepsis [Unknown]
  - Renal mass [Unknown]
  - Hypertension [Unknown]
  - Non-Hodgkin^s lymphoma [Recovered/Resolved]
  - Pneumonia [Unknown]
  - Paralysis [Unknown]
